FAERS Safety Report 19758891 (Version 1)
Quarter: 2021Q3

REPORT INFORMATION
  Report Type: Report from Study
  Country: CA (occurrence: CA)
  Receive Date: 20210829
  Receipt Date: 20210829
  Transmission Date: 20211014
  Serious: Yes (Other)
  Sender: FDA-Public Use
  Company Number: CA-ACCORD-236026

PATIENT
  Age: 51 Year
  Sex: Male
  Weight: 94 kg

DRUGS (14)
  1. PANTOPRAZOLE [Concomitant]
     Active Substance: PANTOPRAZOLE
     Dosage: 1 EVERY 1 DAYS
     Route: 065
  2. INSULIN GLARGINE [Concomitant]
     Active Substance: INSULIN GLARGINE
     Dosage: SOLUTION SUBCUTANEOUS
     Route: 065
  3. METOPROLOL. [Concomitant]
     Active Substance: METOPROLOL
     Dosage: 2 EVERY 1 DAYS
     Route: 065
  4. METFORMIN [Suspect]
     Active Substance: METFORMIN HYDROCHLORIDE
     Indication: PRODUCT USED FOR UNKNOWN INDICATION
     Dosage: 2 EVERY 1 DAYS
     Route: 048
  5. CLOZAPINE. [Suspect]
     Active Substance: CLOZAPINE
     Indication: PSYCHOTIC DISORDER
     Dosage: 2 EVERY 1 DAYS
     Route: 048
  6. HALOPERIDOL. [Suspect]
     Active Substance: HALOPERIDOL
     Indication: PSYCHOTIC DISORDER
     Dosage: 2 EVERY 1 DAYS
     Route: 048
  7. TEVA (DULOXETINE HYDROCHLORIDE) [Suspect]
     Active Substance: DULOXETINE HYDROCHLORIDE
     Indication: PSYCHOTIC DISORDER
     Dosage: 1 EVERY 1 DAYS
     Route: 048
  8. CLONAZEPAM. [Concomitant]
     Active Substance: CLONAZEPAM
     Dosage: 2 EVERY 1 DAYS
  9. TYLENOL [Concomitant]
     Active Substance: ACETAMINOPHEN
     Route: 065
  10. BENZATROPINE/BENZATROPINE MESILATE [Concomitant]
     Active Substance: BENZTROPINE
     Dosage: 2 EVERY 1 DAYS
     Route: 065
  11. LEVOTHYROXINE. [Concomitant]
     Active Substance: LEVOTHYROXINE
     Dosage: 1 EVERY 1 DAYS
     Route: 065
  12. LACTULOSE. [Concomitant]
     Active Substance: LACTULOSE
     Dosage: ORAL
     Route: 065
  13. ZOPICLONE [Concomitant]
     Active Substance: ZOPICLONE
     Dosage: 1 EVERY 1 DAYS
  14. DESOXIMETASONE. [Concomitant]
     Active Substance: DESOXIMETASONE
     Dosage: 2 EVERY 1 DAYS
     Route: 065

REACTIONS (13)
  - Gait disturbance [Unknown]
  - Lactic acidosis [Unknown]
  - Pyrexia [Unknown]
  - Somnolence [Unknown]
  - Neuroleptic malignant syndrome [Unknown]
  - Nystagmus [Unknown]
  - Fall [Unknown]
  - Myocarditis [Unknown]
  - Cogwheel rigidity [Unknown]
  - Blood creatine phosphokinase increased [Unknown]
  - Balance disorder [Unknown]
  - Hypertonia [Unknown]
  - Tachycardia [Unknown]
